FAERS Safety Report 7494692-0 (Version None)
Quarter: 2011Q2

REPORT INFORMATION
  Report Type: 
  Country: None (occurrence: None)
  Receive Date: 20110520
  Receipt Date: 20110511
  Transmission Date: 20111010
  Serious: Yes (Death, Hospitalization)
  Sender: FDA-Public Use
  Company Number: US-GENZYME-MOZO-1000404

PATIENT
  Sex: Female
  Weight: 54 kg

DRUGS (4)
  1. MOZOBIL [Suspect]
     Indication: MYELODYSPLASTIC SYNDROME
  2. G-CSF [Suspect]
     Indication: MYELODYSPLASTIC SYNDROME
     Dosage: 10 MCG/KG, UNK
     Route: 065
     Dates: start: 20100927, end: 20101004
  3. AZACITIDINE [Suspect]
     Indication: MYELODYSPLASTIC SYNDROME
     Dosage: 75 MG/M2, UNK
     Route: 065
     Dates: start: 20100930, end: 20101004
  4. MOZOBIL [Suspect]
     Indication: HAEMATOPOIETIC STEM CELL MOBILISATION
     Dosage: 320 MCG/KG, UNK
     Route: 065
     Dates: start: 20100929, end: 20101004

REACTIONS (4)
  - PNEUMONIA [None]
  - DEVICE RELATED INFECTION [None]
  - DISEASE PROGRESSION [None]
  - VAGINAL HAEMORRHAGE [None]
